FAERS Safety Report 12322755 (Version 2)
Quarter: 2016Q2

REPORT INFORMATION
  Report Type: Spontaneous
  Country: US (occurrence: US)
  Receive Date: 20160502
  Receipt Date: 20160506
  Transmission Date: 20160815
  Serious: No
  Sender: FDA-Public Use
  Company Number: US-PFIZER INC-2016231877

PATIENT
  Age: 29 Year
  Sex: Female

DRUGS (6)
  1. TRAZODONE [Concomitant]
     Active Substance: TRAZODONE HYDROCHLORIDE
     Indication: SLEEP DISORDER
     Dosage: 50MG ONCE A DAY AT NIGHT
  2. TRAZODONE [Concomitant]
     Active Substance: TRAZODONE HYDROCHLORIDE
     Indication: RELAXATION THERAPY
  3. VENLAFAXINE HCL [Suspect]
     Active Substance: VENLAFAXINE HYDROCHLORIDE
     Indication: PANIC ATTACK
     Dosage: 225 MG
     Dates: start: 2015, end: 2015
  4. VENLAFAXINE HCL [Suspect]
     Active Substance: VENLAFAXINE HYDROCHLORIDE
     Indication: ANXIETY
     Dosage: 150 MG, UNK
     Dates: start: 2009, end: 2015
  5. VENLAFAXINE HCL [Suspect]
     Active Substance: VENLAFAXINE HYDROCHLORIDE
     Dosage: ONE 150 CAPSULE AND ONE 75MG CAPSULE EVERY MORNING
     Route: 048
     Dates: start: 20160406
  6. VENLAFAXINE HCL [Suspect]
     Active Substance: VENLAFAXINE HYDROCHLORIDE
     Indication: OBSESSIVE THOUGHTS
     Dosage: 150 MG

REACTIONS (5)
  - Supraventricular tachycardia [Recovered/Resolved]
  - Agitation [Unknown]
  - Anxiety [Unknown]
  - Condition aggravated [Unknown]
  - Fear [Unknown]

NARRATIVE: CASE EVENT DATE: 2015
